FAERS Safety Report 4604013-6 (Version None)
Quarter: 2005Q1

REPORT INFORMATION
  Report Type: 
  Country: None (occurrence: None)
  Receive Date: 20050308
  Receipt Date: 20050224
  Transmission Date: 20050727
  Serious: Yes (Other)
  Sender: FDA-Public Use
  Company Number: 2005002261

PATIENT
  Sex: Male

DRUGS (2)
  1. DETROL LA [Suspect]
     Indication: ILL-DEFINED DISORDER
     Dosage: ORAL
     Route: 048
  2. CELEBREX [Suspect]
     Indication: ILL-DEFINED DISORDER

REACTIONS (2)
  - CARDIOVASCULAR DISORDER [None]
  - STENT PLACEMENT [None]
